FAERS Safety Report 15146599 (Version 1)
Quarter: 2018Q3

REPORT INFORMATION
  Report Type: Spontaneous
  Country: NO (occurrence: NO)
  Receive Date: 20180715
  Receipt Date: 20180715
  Transmission Date: 20181010
  Serious: Yes (Disabling, Other)
  Sender: FDA-Public Use
  Company Number: NO-AMGEN-NORSP2018095879

PATIENT
  Age: 45 Year
  Sex: Female

DRUGS (1)
  1. ENBREL [Suspect]
     Active Substance: ETANERCEPT
     Indication: ANKYLOSING SPONDYLITIS
     Dosage: 50 MG, UNK
     Route: 058
     Dates: start: 20110922, end: 20160401

REACTIONS (2)
  - Myelitis [Recovered/Resolved with Sequelae]
  - White matter lesion [Recovered/Resolved with Sequelae]

NARRATIVE: CASE EVENT DATE: 20160401
